FAERS Safety Report 8777879 (Version 4)
Quarter: 2012Q4

REPORT INFORMATION
  Report Type: 
  Country: US (occurrence: US)
  Receive Date: 20120911
  Receipt Date: 20121012
  Transmission Date: 20130627
  Serious: Yes (Other)
  Sender: FDA-Public Use
  Company Number: PHEH2012US014116

PATIENT
  Age: 55 Year
  Sex: Female
  Weight: 68.93 kg

DRUGS (6)
  1. GILENYA [Suspect]
     Indication: MULTIPLE SCLEROSIS
     Dosage: 0.5 mg, QD
     Route: 048
     Dates: start: 20120717
  2. KLONOPIN [Concomitant]
     Dosage: 2 mg, TID
     Route: 048
  3. TRAZODONE HYDROCHLORIDE [Concomitant]
     Dosage: 150 mg, BID
     Route: 048
  4. SYNTHROID [Concomitant]
     Dosage: 150 ug, QD
     Route: 048
  5. BACLOFEN [Concomitant]
     Dosage: 10 mg, QD
     Route: 048
  6. VICODIN ES [Concomitant]
     Dosage: 1 DF, TID
     Route: 048

REACTIONS (18)
  - Electrocardiogram QT prolonged [Unknown]
  - Sinus bradycardia [Unknown]
  - Electrocardiogram ST segment abnormal [Unknown]
  - Muscle tightness [Not Recovered/Not Resolved]
  - Mood swings [Recovered/Resolved]
  - Crying [Not Recovered/Not Resolved]
  - Agitation [Not Recovered/Not Resolved]
  - Tremor [Not Recovered/Not Resolved]
  - Tinnitus [Not Recovered/Not Resolved]
  - Anxiety [Not Recovered/Not Resolved]
  - Hypoaesthesia [Not Recovered/Not Resolved]
  - Sunburn [Not Recovered/Not Resolved]
  - Sensory disturbance [Recovered/Resolved]
  - Erythema [Not Recovered/Not Resolved]
  - Dizziness [Not Recovered/Not Resolved]
  - Back pain [Not Recovered/Not Resolved]
  - Headache [Recovered/Resolved]
  - Alopecia [Not Recovered/Not Resolved]
